FAERS Safety Report 14306913 (Version 1)
Quarter: 2017Q4

REPORT INFORMATION
  Report Type: Spontaneous
  Country: NL (occurrence: NL)
  Receive Date: 20171220
  Receipt Date: 20171220
  Transmission Date: 20180321
  Serious: Yes (Other)
  Sender: FDA-Public Use
  Company Number: NL-AMGEN-NLDSP2017185820

PATIENT
  Sex: Male

DRUGS (1)
  1. REPATHA [Suspect]
     Active Substance: EVOLOCUMAB
     Indication: PRODUCT USED FOR UNKNOWN INDICATION
     Dosage: 140 MG/ML, UNK
     Route: 065
     Dates: end: 2017

REACTIONS (4)
  - Fatigue [Unknown]
  - Urinary retention [Unknown]
  - Angina unstable [Unknown]
  - Myalgia [Unknown]

NARRATIVE: CASE EVENT DATE: 201709
